FAERS Safety Report 6983288-2 (Version None)
Quarter: 2010Q3

REPORT INFORMATION
  Report Type: 
  Country: None (occurrence: None)
  Receive Date: 20100914
  Receipt Date: 20100720
  Transmission Date: 20110219
  Serious: No
  Sender: FDA-Public Use
  Company Number: US-PFIZER INC-2010090995

PATIENT
  Sex: Female
  Weight: 61 kg

DRUGS (11)
  1. LYRICA [Suspect]
     Indication: NEURALGIA
     Dosage: 50 MG, DAILY
     Route: 048
     Dates: start: 20100101
  2. XANAX [Concomitant]
     Indication: ANXIETY
     Dosage: .5 MG, 4X/DAY
     Route: 048
  3. LISINOPRIL AND HYDROCHLOROTHIAZIDE [Concomitant]
     Indication: HYPERTENSION
     Dosage: 20/12.5 MG, UNK
  4. AMLODIPINE [Concomitant]
     Indication: HYPERTENSION
     Dosage: 5 MG, UNK
  5. LIPITOR [Concomitant]
     Indication: BLOOD CHOLESTEROL INCREASED
     Dosage: 80 MG, UNK
     Route: 048
  6. ZETIA [Concomitant]
     Indication: BLOOD CHOLESTEROL INCREASED
     Dosage: 10 MG, UNK
     Route: 048
  7. LEVOTHYROXINE [Concomitant]
     Indication: THYROID DISORDER
     Dosage: 75 MG, DAILY
  8. REMERON [Concomitant]
     Indication: DEPRESSION
     Dosage: 90 MG, DAILY
     Route: 048
  9. REMERON [Concomitant]
     Indication: POST-TRAUMATIC STRESS DISORDER
  10. LUNESTA [Concomitant]
     Indication: NEURALGIA
     Dosage: 3 MG, DAILY
     Route: 048
  11. TIZANIDINE [Concomitant]
     Indication: NEURALGIA
     Dosage: 4 MG, 2X/DAY

REACTIONS (1)
  - DYSPNOEA [None]
